FAERS Safety Report 8277589-8 (Version None)
Quarter: 2012Q1

REPORT INFORMATION
  Report Type: 
  Country: None (occurrence: None)
  Receive Date: 20120312
  Receipt Date: 20120123
  Transmission Date: 20120608
  Serious: No
  Sender: FDA-Public Use
  Company Number: 2012SP004264

PATIENT
  Age: 26 Year
  Sex: Female
  Weight: 72.5755 kg

DRUGS (3)
  1. VYVANSE [Concomitant]
  2. DOXEPIN HCL [Concomitant]
  3. SAPHRIS [Suspect]
     Indication: BIPOLAR DISORDER
     Dates: start: 20110101

REACTIONS (2)
  - HUNGER [None]
  - WEIGHT INCREASED [None]
